FAERS Safety Report 7621852-8 (Version None)
Quarter: 2011Q3

REPORT INFORMATION
  Report Type: 
  Country: None (occurrence: None)
  Receive Date: 20110720
  Receipt Date: 20110712
  Transmission Date: 20111222
  Serious: No
  Sender: FDA-Public Use
  Company Number: US-BIOGENIDEC-2011BI009815

PATIENT
  Age: 42 Year
  Sex: Female

DRUGS (4)
  1. AVONEX [Concomitant]
     Route: 030
  2. SOLU-MEDROL [Concomitant]
     Indication: PREMEDICATION
  3. BENADRYL [Concomitant]
     Indication: PREMEDICATION
  4. TYSABRI [Suspect]
     Indication: MULTIPLE SCLEROSIS
     Route: 042
     Dates: start: 20110311

REACTIONS (9)
  - MENTAL IMPAIRMENT [None]
  - EYE PAIN [None]
  - VITREOUS FLOATERS [None]
  - FATIGUE [None]
  - DIZZINESS [None]
  - BACK PAIN [None]
  - HYPERSENSITIVITY [None]
  - DEPRESSION [None]
  - MUSCULAR WEAKNESS [None]
